FAERS Safety Report 8021607-9 (Version None)
Quarter: 2012Q1

REPORT INFORMATION
  Report Type: 
  Country: None (occurrence: None)
  Receive Date: 20120104
  Receipt Date: 20120104
  Transmission Date: 20120608
  Serious: Yes (Hospitalization)
  Sender: FDA-Public Use
  Company Number: None

PATIENT
  Sex: Male
  Weight: 1133 kg

DRUGS (4)
  1. ASPIRIN [Concomitant]
     Route: 048
  2. EXFORGE [Concomitant]
  3. HUMIRA [Suspect]
     Indication: PSORIASIS
     Dosage: 40MG/0.8ML
     Route: 058
     Dates: start: 20111129, end: 20111220
  4. PRAVASTATIN [Concomitant]
     Route: 048

REACTIONS (1)
  - CELLULITIS [None]
